FAERS Safety Report 12474213 (Version 2)
Quarter: 2016Q2

REPORT INFORMATION
  Report Type: Spontaneous
  Country: JP (occurrence: JP)
  Receive Date: 20160616
  Receipt Date: 20160630
  Transmission Date: 20160815
  Serious: Yes (Other)
  Sender: FDA-Public Use
  Company Number: JP-JNJFOC-20160611220

PATIENT
  Age: 70 Year
  Sex: Male

DRUGS (2)
  1. RIUP [Suspect]
     Active Substance: MINOXIDIL
     Route: 061
  2. RIUP [Suspect]
     Active Substance: MINOXIDIL
     Indication: ANDROGENETIC ALOPECIA
     Dosage: 1MLX2
     Route: 061
     Dates: start: 2013

REACTIONS (1)
  - Breast cancer [Not Recovered/Not Resolved]
